FAERS Safety Report 5392904-0 (Version None)
Quarter: 2007Q3

REPORT INFORMATION
  Report Type: 
  Country: None (occurrence: None)
  Receive Date: 20070718
  Receipt Date: 20070713
  Transmission Date: 20080115
  Serious: Yes (Death, Life-Threatening)
  Sender: FDA-Public Use
  Company Number: 2007S1000124

PATIENT
  Age: 2 Day
  Sex: Female
  Weight: 0.72 kg

DRUGS (10)
  1. NITRIC OXIDE [Suspect]
     Indication: LUNG DISORDER
     Dosage: 5 PPM;CONT;INH
     Route: 055
     Dates: start: 20070608, end: 20070629
  2. INSULIN [Concomitant]
     Indication: PROPHYLAXIS
  3. ATROPINE [Concomitant]
  4. CLAFORAN [Concomitant]
  5. GENTAMICIN [Concomitant]
  6. MORPHINE [Concomitant]
  7. AMOXICILLIN TRIHYDRATE [Concomitant]
  8. SUFENTA [Concomitant]
  9. GARDENAL ^AVENTIS^ [Concomitant]
  10. DIAMOX FOR INJECTION [Concomitant]

REACTIONS (2)
  - CEREBRAL VENTRICLE DILATATION [None]
  - INTRAVENTRICULAR HAEMORRHAGE NEONATAL [None]
